FAERS Safety Report 5034191-9 (Version None)
Quarter: 2006Q2

REPORT INFORMATION
  Report Type: 
  Country: None (occurrence: None)
  Receive Date: 20060626
  Receipt Date: 20060623
  Transmission Date: 20061013
  Serious: Yes (Hospitalization)
  Sender: FDA-Public Use
  Company Number: US-GLAXOSMITHKLINE-A0610158A

PATIENT
  Sex: Female

DRUGS (5)
  1. LOTRONEX [Suspect]
     Indication: DRUG USE FOR UNKNOWN INDICATION
     Dosage: 4TAB PER DAY
     Route: 048
     Dates: start: 20050901, end: 20060215
  2. TOPROL-XL [Concomitant]
  3. CYMBALTA [Concomitant]
  4. PROTONIX [Concomitant]
  5. LANTUS [Concomitant]

REACTIONS (5)
  - CONFUSIONAL STATE [None]
  - FALL [None]
  - NAUSEA [None]
  - OVERDOSE [None]
  - REGURGITATION OF FOOD [None]
